FAERS Safety Report 20797925 (Version 1)
Quarter: 2022Q2

REPORT INFORMATION
  Report Type: Report from Study
  Country: DE (occurrence: DE)
  Receive Date: 20220506
  Receipt Date: 20220506
  Transmission Date: 20220721
  Serious: Yes (Hospitalization)
  Sender: FDA-Public Use
  Company Number: DE-SA-SAC20220502000676

PATIENT
  Age: 69 Year
  Sex: Female
  Weight: 48 kg

DRUGS (9)
  1. ISATUXIMAB [Suspect]
     Active Substance: ISATUXIMAB
     Indication: Plasma cell myeloma
     Dosage: 480 MG
     Route: 042
     Dates: start: 20191203
  2. ISATUXIMAB [Suspect]
     Active Substance: ISATUXIMAB
     Dosage: 480 MG
     Route: 042
     Dates: start: 20220419
  3. CARFILZOMIB [Suspect]
     Active Substance: CARFILZOMIB
     Indication: Plasma cell myeloma
     Dosage: 99.4 MG
     Route: 042
     Dates: start: 20191203
  4. CARFILZOMIB [Suspect]
     Active Substance: CARFILZOMIB
     Dosage: 99.4 MG
     Route: 042
     Dates: start: 20220419
  5. LENALIDOMIDE [Suspect]
     Active Substance: LENALIDOMIDE
     Indication: Plasma cell myeloma
     Dosage: 5 MG
     Route: 048
     Dates: start: 20191203
  6. LENALIDOMIDE [Suspect]
     Active Substance: LENALIDOMIDE
     Dosage: 5 MG
     Route: 048
     Dates: start: 20220125
  7. DEXAMETHASONE [Suspect]
     Active Substance: DEXAMETHASONE
     Indication: Plasma cell myeloma
     Dosage: 8 MG
     Route: 042
     Dates: start: 20191203
  8. DEXAMETHASONE [Suspect]
     Active Substance: DEXAMETHASONE
     Dosage: 8 MG
     Route: 042
     Dates: start: 20210713
  9. MELPHALAN [Concomitant]
     Active Substance: MELPHALAN
     Dosage: UNK
     Dates: start: 20200905

REACTIONS (1)
  - Renal failure [Recovered/Resolved]

NARRATIVE: CASE EVENT DATE: 20220427
